FAERS Safety Report 4368660-1 (Version None)
Quarter: 2004Q2

REPORT INFORMATION
  Report Type: 
  Country: None (occurrence: None)
  Receive Date: 20040528
  Receipt Date: 20040517
  Transmission Date: 20050107
  Serious: Yes (Death, Life-Threatening, Hospitalization, Other)
  Sender: FDA-Public Use
  Company Number: 1998151049-FG

PATIENT
  Age: 30 Month
  Sex: Male

DRUGS (7)
  1. PROGRAF [Suspect]
     Indication: LIVER TRANSPLANT
     Dosage: 6.00 MG, D, ORAL
     Route: 048
     Dates: start: 19980513, end: 19980827
  2. PREDNISONE [Concomitant]
  3. SULFADIAZINE [Concomitant]
  4. PYRIMETHAMINE TAB [Concomitant]
  5. METHYLPREDNISOLONE [Concomitant]
  6. PHENYTOIN [Concomitant]
  7. ACYCLOVIR [Concomitant]

REACTIONS (21)
  - CAMPYLOBACTER INFECTION [None]
  - CANDIDA SEPSIS [None]
  - CENTRAL NERVOUS SYSTEM LYMPHOMA [None]
  - CHOLANGITIS [None]
  - CONVULSION [None]
  - EPSTEIN-BARR VIRUS INFECTION [None]
  - HEPATIC FAILURE [None]
  - HISTIOCYTOSIS HAEMATOPHAGIC [None]
  - HYPOGAMMAGLOBULINAEMIA [None]
  - INTRACRANIAL PRESSURE INCREASED [None]
  - LIVER TRANSPLANT REJECTION [None]
  - LUNG DISORDER [None]
  - LYMPHOPROLIFERATIVE DISORDER [None]
  - MEDICAL DEVICE COMPLICATION [None]
  - MULTI-ORGAN FAILURE [None]
  - NUCLEAR MAGNETIC RESONANCE IMAGING BRAIN ABNORMAL [None]
  - OPPORTUNISTIC INFECTION [None]
  - PNEUMOCYSTIS CARINII PNEUMONIA [None]
  - PNEUMONIA CYTOMEGALOVIRAL [None]
  - PNEUMONIA MYCOPLASMAL [None]
  - SEPTIC SHOCK [None]
